FAERS Safety Report 6522593-0 (Version None)
Quarter: 2009Q4

REPORT INFORMATION
  Report Type: 
  Country: None (occurrence: None)
  Receive Date: 20091224
  Receipt Date: 20091214
  Transmission Date: 20100525
  Serious: Yes (Hospitalization, Other)
  Sender: FDA-Public Use
  Company Number: 2009SP003376

PATIENT
  Age: 38 Year
  Sex: Male
  Weight: 105 kg

DRUGS (3)
  1. LUNESTA [Suspect]
     Indication: INSOMNIA
     Dosage: 3 MG, PRN, ORAL
     Route: 048
     Dates: end: 20090101
  2. ARMODAFINIL [Concomitant]
  3. PREV MED UNKNOWN [Concomitant]

REACTIONS (4)
  - CONVULSION [None]
  - DRUG ABUSE [None]
  - FALL [None]
  - INCORRECT DOSE ADMINISTERED [None]
